FAERS Safety Report 20249215 (Version 3)
Quarter: 2022Q1

REPORT INFORMATION
  Report Type: Report from Study
  Country: US (occurrence: US)
  Receive Date: 20211229
  Receipt Date: 20220113
  Transmission Date: 20220423
  Serious: Yes (Hospitalization)
  Sender: FDA-Public Use
  Company Number: US-PFIZER INC-202101829810

PATIENT
  Age: 57 Year
  Sex: Female
  Weight: 95.9 kg

DRUGS (10)
  1. ABROCITINIB [Suspect]
     Active Substance: ABROCITINIB
     Indication: Dermatitis atopic
     Dosage: 100 MG, QD
     Route: 048
     Dates: start: 20210317, end: 20211216
  2. NIFEDIPINE [Suspect]
     Active Substance: NIFEDIPINE
     Indication: Hypertension
     Dosage: 90 MG (ER), BID
     Route: 048
     Dates: start: 20211217, end: 20211217
  3. PRILOSEC [Concomitant]
     Active Substance: OMEPRAZOLE MAGNESIUM
     Indication: Gastrooesophageal reflux disease
     Dosage: 20 MG, QD
     Route: 048
     Dates: start: 2016
  4. ADVAIR HFA [Concomitant]
     Active Substance: FLUTICASONE PROPIONATE\SALMETEROL XINAFOATE
     Indication: Asthma
     Dosage: [FLUTICASONE PROPIONATE 250MCG/SALMETEROL XINAFOATE 50MCG] BID
     Route: 048
     Dates: start: 20050520
  5. PROVENTIL [Concomitant]
     Active Substance: ALBUTEROL
     Indication: Asthma
     Dosage: 90MCG, PRN
     Route: 055
     Dates: start: 2005
  6. DIPHENHYDRAMINE [Concomitant]
     Active Substance: DIPHENHYDRAMINE
     Indication: Rhinitis perennial
     Dosage: 25 MG, PRN
     Route: 048
     Dates: start: 1980
  7. VITAMIN D NOS [Concomitant]
     Active Substance: VITAMIN D NOS
     Indication: Vitamin D deficiency
     Dosage: 1000 IU, QD
     Route: 048
     Dates: start: 20161202
  8. SPIRONOLACTONE [Concomitant]
     Active Substance: SPIRONOLACTONE
     Indication: Hypertension
     Dosage: 25 MG, QD
     Route: 048
     Dates: start: 20210812, end: 20211216
  9. CHLORTHALIDONE [Concomitant]
     Active Substance: CHLORTHALIDONE
     Indication: Hypertension
     Dosage: 25 MG, QD
     Route: 048
     Dates: start: 20210812, end: 20211216
  10. METOPROLOL [Concomitant]
     Active Substance: METOPROLOL
     Indication: Hypertension
     Dosage: 100 MG, BID
     Route: 048
     Dates: start: 20211018

REACTIONS (1)
  - Drug hypersensitivity [Recovered/Resolved]

NARRATIVE: CASE EVENT DATE: 20211217
